FAERS Safety Report 12416669 (Version 5)
Quarter: 2016Q3

REPORT INFORMATION
  Report Type: Spontaneous
  Country: US (occurrence: US)
  Receive Date: 20160530
  Receipt Date: 20160729
  Transmission Date: 20161109
  Serious: Yes (Other)
  Sender: FDA-Public Use
  Company Number: US-PFIZER INC-2016274250

PATIENT
  Age: 67 Year
  Sex: Female

DRUGS (2)
  1. LYRICA [Suspect]
     Active Substance: PREGABALIN
     Indication: FIBROMYALGIA
     Dosage: 50 MG, 2X/DAY
     Dates: start: 20160421, end: 20160426
  2. LYRICA [Suspect]
     Active Substance: PREGABALIN
     Dosage: 50 MG, 1X/DAY (AT BEDTIME)
     Dates: start: 20160508, end: 20160522

REACTIONS (5)
  - Tinnitus [Not Recovered/Not Resolved]
  - Autonomic nervous system imbalance [Unknown]
  - Depression [Unknown]
  - Drug intolerance [Not Recovered/Not Resolved]
  - Deafness [Not Recovered/Not Resolved]
